FAERS Safety Report 5200269-X (Version None)
Quarter: 2007Q1

REPORT INFORMATION
  Report Type: 
  Country: None (occurrence: None)
  Receive Date: 20070103
  Receipt Date: 20061219
  Transmission Date: 20070707
  Serious: Yes (Death)
  Sender: FDA-Public Use
  Company Number: 088

PATIENT
  Sex: Female

DRUGS (1)
  1. FAZACLO ODT [Suspect]
     Dates: start: 20061113, end: 20061209

REACTIONS (7)
  - CARDIO-RESPIRATORY ARREST [None]
  - LETHARGY [None]
  - LIVEDO RETICULARIS [None]
  - PNEUMONIA [None]
  - PYREXIA [None]
  - RETCHING [None]
  - VOMITING [None]
